FAERS Safety Report 9029169 (Version 1)
Quarter: 2013Q1

REPORT INFORMATION
  Report Type: Spontaneous
  Country: KR (occurrence: KR)
  Receive Date: 20130125
  Receipt Date: 20130125
  Transmission Date: 20140127
  Serious: Yes (Other)
  Sender: FDA-Public Use
  Company Number: KR-JNJFOC-20130111763

PATIENT
  Age: 66 Year
  Sex: Female

DRUGS (4)
  1. TOPIRAMATE [Suspect]
     Indication: PARTIAL SEIZURES
     Route: 048
  2. VALPROIC ACID [Interacting]
     Indication: PARTIAL SEIZURES
     Route: 065
  3. CARBAMAZEPINE [Interacting]
     Indication: PARTIAL SEIZURES
     Route: 065
  4. VIGABATRIN [Interacting]
     Indication: PARTIAL SEIZURES
     Route: 065

REACTIONS (4)
  - Encephalopathy [Recovered/Resolved]
  - Drug interaction [Recovered/Resolved]
  - Hyperammonaemia [Recovered/Resolved]
  - Urinary incontinence [Recovered/Resolved]
